FAERS Safety Report 20683226 (Version 2)
Quarter: 2022Q2

REPORT INFORMATION
  Report Type: Spontaneous
  Country: CH (occurrence: CH)
  Receive Date: 20220407
  Receipt Date: 20220615
  Transmission Date: 20220720
  Serious: Yes (Other)
  Sender: FDA-Public Use
  Company Number: CH-NOVARTISPH-NVSC2022CH056270

PATIENT
  Sex: Female

DRUGS (1)
  1. KESIMPTA [Suspect]
     Active Substance: OFATUMUMAB
     Indication: Relapsing multiple sclerosis
     Dosage: 20 MG, Q4W (AFTER TITRATION)
     Route: 058
     Dates: start: 20210913, end: 20220225

REACTIONS (3)
  - Nasopharyngitis [Unknown]
  - Abdominal pain [Unknown]
  - Dyspepsia [Unknown]
